FAERS Safety Report 21992220 (Version 1)
Quarter: 2023Q1

REPORT INFORMATION
  Report Type: Spontaneous
  Country: PH (occurrence: PH)
  Receive Date: 20230214
  Receipt Date: 20230214
  Transmission Date: 20230417
  Serious: Yes (Other)
  Sender: FDA-Public Use
  Company Number: ALC2023PH000845

PATIENT
  Sex: Female

DRUGS (3)
  1. ALCAINE [Suspect]
     Active Substance: PROPARACAINE HYDROCHLORIDE
     Indication: Preoperative care
     Dosage: UNK UNK, TID EVERY 15 MINUTE PRE-OPERATION
     Route: 047
     Dates: start: 20230125
  2. POVIDONE-IODINE [Concomitant]
     Active Substance: POVIDONE-IODINE
     Indication: Preoperative care
     Dosage: UNK
     Route: 065
  3. POVIDONE-IODINE [Concomitant]
     Active Substance: POVIDONE-IODINE
     Indication: Preoperative care
     Dosage: UNK
     Route: 065

REACTIONS (1)
  - Chemical burns of eye [Unknown]

NARRATIVE: CASE EVENT DATE: 20230125
